FAERS Safety Report 8946890 (Version 2)
Quarter: 2013Q1

REPORT INFORMATION
  Report Type: Spontaneous
  Country: FR (occurrence: FR)
  Receive Date: 20121205
  Receipt Date: 20130307
  Transmission Date: 20140127
  Serious: Yes (Hospitalization)
  Sender: FDA-Public Use
  Company Number: FR-GLAXOSMITHKLINE-B0848014A

PATIENT
  Sex: Male

DRUGS (10)
  1. REQUIP LP [Suspect]
     Indication: PARKINSON^S DISEASE
     Dosage: 2MG PER DAY
     Route: 048
     Dates: start: 201209
  2. MODOPAR [Suspect]
     Indication: PARKINSON^S DISEASE
     Dosage: 125MG PER DAY
     Route: 048
  3. MODOPAR [Suspect]
     Indication: PARKINSON^S DISEASE
     Dosage: 125MG TWICE PER DAY
     Route: 048
  4. APROVEL [Concomitant]
     Indication: HYPERTENSION
     Dosage: 150MG PER DAY
     Route: 048
  5. CARBOCISTEIN [Concomitant]
     Dosage: 1TBS THREE TIMES PER DAY
     Route: 048
  6. LANSOPRAZOLE [Concomitant]
     Dosage: 15MG PER DAY
     Route: 048
  7. LUBENTYL [Concomitant]
     Indication: CONSTIPATION
     Dosage: 2UNIT PER DAY
     Route: 048
  8. NASACORT [Concomitant]
     Dosage: 55MCG TWICE PER DAY
     Route: 055
  9. PARACETAMOL [Concomitant]
     Dosage: 1G PER DAY
     Route: 048
  10. SPASFON [Concomitant]
     Dosage: 2TAB TWICE PER DAY
     Route: 048

REACTIONS (3)
  - Dizziness [Recovering/Resolving]
  - Orthostatic hypotension [Unknown]
  - Abasia [Recovering/Resolving]
